FAERS Safety Report 9527908 (Version 2)
Quarter: 2013Q4

REPORT INFORMATION
  Report Type: Spontaneous
  Country: US (occurrence: US)
  Receive Date: 20130917
  Receipt Date: 20131031
  Transmission Date: 20140711
  Serious: Yes (Other)
  Sender: FDA-Public Use
  Company Number: US-SANOFI-AVENTIS-2013SA090119

PATIENT
  Sex: Female

DRUGS (2)
  1. LANTUS SOLOSTAR [Suspect]
     Route: 065
  2. SOLOSTAR [Concomitant]

REACTIONS (3)
  - Superior mesenteric artery syndrome [Unknown]
  - Condition aggravated [Unknown]
  - Incorrect product storage [Unknown]
